FAERS Safety Report 4613321-4 (Version None)
Quarter: 2005Q1

REPORT INFORMATION
  Report Type: 
  Country: None (occurrence: None)
  Receive Date: 20050315
  Receipt Date: 20050224
  Transmission Date: 20050727
  Serious: Yes (Other)
  Sender: FDA-Public Use
  Company Number: DE_050115068

PATIENT
  Age: 60 Year
  Sex: Female

DRUGS (6)
  1. YENTREVE (DULOXETINE HYDROCHLORIDE) [Suspect]
     Dates: start: 20050101
  2. BELOC-ZOC MITE (METOPROLOL SUCCINATE) [Concomitant]
  3. LORZAAR PLUS [Concomitant]
  4. NORVASC [Concomitant]
  5. LAMICTAL [Concomitant]
  6. ORFIRIL (VALPROIC ACID) [Concomitant]

REACTIONS (1)
  - BLOOD PRESSURE INCREASED [None]
